FAERS Safety Report 23409987 (Version 3)
Quarter: 2024Q1

REPORT INFORMATION
  Report Type: Spontaneous
  Country: CO (occurrence: CO)
  Receive Date: 20240117
  Receipt Date: 20240125
  Transmission Date: 20240410
  Serious: Yes (Other)
  Sender: FDA-Public Use
  Company Number: CO-MYLANLABS-2024M1004941

PATIENT
  Age: 30 Year
  Sex: Female

DRUGS (1)
  1. LEVONORGESTREL [Suspect]
     Active Substance: LEVONORGESTREL
     Indication: Uterine leiomyoma
     Dosage: UNK, LEVONORGESTREL INTRAUTERINE DEVICE
     Route: 015

REACTIONS (1)
  - Intracranial pressure increased [Recovering/Resolving]
